FAERS Safety Report 21228058 (Version 1)
Quarter: 2022Q3

REPORT INFORMATION
  Report Type: Spontaneous
  Country: US (occurrence: US)
  Receive Date: 20220818
  Receipt Date: 20220818
  Transmission Date: 20221026
  Serious: No
  Sender: FDA-Public Use
  Company Number: US-GSK-US2022AMR118464

PATIENT
  Sex: Female

DRUGS (1)
  1. BENLYSTA [Suspect]
     Active Substance: BELIMUMAB
     Indication: Autoimmune haemolytic anaemia
     Dosage: 200 MG, Z,EVERY WEEK
     Route: 058

REACTIONS (4)
  - Hypersensitivity [Unknown]
  - Rash [Unknown]
  - Scratch [Unknown]
  - Product use in unapproved indication [Unknown]
